FAERS Safety Report 10581113 (Version 1)
Quarter: 2014Q4

REPORT INFORMATION
  Report Type: Spontaneous
  Country: US (occurrence: US)
  Receive Date: 20141113
  Receipt Date: 20141113
  Transmission Date: 20150529
  Serious: Yes (Hospitalization)
  Sender: FDA-Public Use
  Company Number: US-SA-2014SA153714

PATIENT
  Sex: Female

DRUGS (4)
  1. SOLOSTAR [Concomitant]
     Active Substance: DEVICE
     Dates: start: 2014
  2. APIDRA SOLOSTAR [Suspect]
     Active Substance: INSULIN GLULISINE
     Dosage: BEFORE MEALS
     Route: 065
     Dates: start: 2014
  3. LANTUS SOLOSTAR [Suspect]
     Active Substance: INSULIN GLARGINE
     Indication: TYPE 2 DIABETES MELLITUS
     Dosage: 15 U AND 12-15 U
     Route: 065
     Dates: start: 2013
  4. SOLOSTAR [Concomitant]
     Active Substance: DEVICE
     Dates: start: 2013

REACTIONS (2)
  - Drug administration error [Unknown]
  - Renal impairment [Not Recovered/Not Resolved]

NARRATIVE: CASE EVENT DATE: 2013
